FAERS Safety Report 21441165 (Version 1)
Quarter: 2022Q4

REPORT INFORMATION
  Report Type: Spontaneous
  Country: US (occurrence: None)
  Receive Date: 20221010
  Receipt Date: 20221010
  Transmission Date: 20230113
  Serious: Yes (Hospitalization)
  Sender: FDA-Public Use
  Company Number: None

PATIENT
  Age: 67 Year
  Sex: Male
  Weight: 67.1 kg

DRUGS (1)
  1. BELATACEPT [Suspect]
     Active Substance: BELATACEPT
     Indication: Renal transplant
     Dosage: OTHER FREQUENCY : MONTHLY;?
     Route: 041
     Dates: start: 20220918

REACTIONS (2)
  - Subcapsular renal haematoma [None]
  - Body temperature increased [None]

NARRATIVE: CASE EVENT DATE: 20221010
